FAERS Safety Report 6524404-6 (Version None)
Quarter: 2010Q1

REPORT INFORMATION
  Report Type: 
  Country: None (occurrence: None)
  Receive Date: 20100101
  Receipt Date: 20091218
  Transmission Date: 20100710
  Serious: Yes (Hospitalization)
  Sender: FDA-Public Use
  Company Number: DE-PFIZER INC-2009315836

PATIENT
  Age: 80 Year
  Sex: Female

DRUGS (2)
  1. BEXTRA [Suspect]
     Dosage: 20 MG, 1X/DAY
     Route: 048
     Dates: start: 20030903
  2. PREDNISOLONE [Concomitant]
     Dosage: 5 MG, 1X/DAY
     Dates: start: 20030903

REACTIONS (1)
  - LEUKOCYTOCLASTIC VASCULITIS [None]
